FAERS Safety Report 6064598-2 (Version None)
Quarter: 2009Q1

REPORT INFORMATION
  Report Type: 
  Country: None (occurrence: None)
  Receive Date: 20090204
  Receipt Date: 20090130
  Transmission Date: 20090719
  Serious: Yes (Other)
  Sender: FDA-Public Use
  Company Number: B0556820A

PATIENT
  Age: 71 Year
  Sex: Male

DRUGS (3)
  1. REQUIP [Suspect]
     Indication: PARKINSON'S DISEASE
     Dosage: 7MG THREE TIMES PER DAY
     Route: 048
  2. REQUIP [Suspect]
     Dosage: 5MG THREE TIMES PER DAY
     Route: 048
  3. REQUIP [Suspect]
     Dosage: 2MG THREE TIMES PER DAY
     Route: 048

REACTIONS (3)
  - ASTHENIA [None]
  - HALLUCINATION [None]
  - LETHARGY [None]
